FAERS Safety Report 9375273 (Version 1)
Quarter: 2013Q2

REPORT INFORMATION
  Report Type: Spontaneous
  Country: US (occurrence: US)
  Receive Date: 20130628
  Receipt Date: 20130628
  Transmission Date: 20140414
  Serious: Yes (Other)
  Sender: FDA-Public Use
  Company Number: US-PAR PHARMACEUTICAL, INC-2013SCPR005980

PATIENT
  Sex: 0

DRUGS (1)
  1. METOCLOPRAMIDE [Suspect]
     Indication: GASTROOESOPHAGEAL REFLUX DISEASE
     Dosage: 10 MG, TID, BEFORE MEALS AND AT BEDTIME, PRN
     Route: 048
     Dates: start: 20070510

REACTIONS (10)
  - Breathing-related sleep disorder [Recovering/Resolving]
  - Hypertension [Not Recovered/Not Resolved]
  - Tardive dyskinesia [Not Recovered/Not Resolved]
  - Depression [Not Recovered/Not Resolved]
  - Somnolence [Not Recovered/Not Resolved]
  - Nightmare [Unknown]
  - Middle insomnia [Recovering/Resolving]
  - Parasomnia [Unknown]
  - Anxiety disorder [Unknown]
  - Dizziness [Not Recovered/Not Resolved]
